FAERS Safety Report 25348528 (Version 1)
Quarter: 2025Q2

REPORT INFORMATION
  Report Type: Spontaneous
  Country: DE (occurrence: DE)
  Receive Date: 20250522
  Receipt Date: 20250522
  Transmission Date: 20250716
  Serious: Yes (Other)
  Sender: MYLAN
  Company Number: DE-AUROBINDO-AUR-APL-2025-022796

PATIENT
  Age: 75 Year
  Sex: Female
  Weight: 42 kg

DRUGS (12)
  1. VENLAFAXINE [Suspect]
     Active Substance: VENLAFAXINE HYDROCHLORIDE
     Indication: Mania
     Dosage: 1 DOSAGE FORM, QD,DAILY(IN THE MORNING)
     Dates: start: 202501
  2. VENLAFAXINE [Suspect]
     Active Substance: VENLAFAXINE HYDROCHLORIDE
     Dosage: 1 DOSAGE FORM, QD,DAILY(IN THE MORNING)
     Route: 048
     Dates: start: 202501
  3. VENLAFAXINE [Suspect]
     Active Substance: VENLAFAXINE HYDROCHLORIDE
     Dosage: 1 DOSAGE FORM, QD,DAILY(IN THE MORNING)
     Route: 048
     Dates: start: 202501
  4. VENLAFAXINE [Suspect]
     Active Substance: VENLAFAXINE HYDROCHLORIDE
     Dosage: 1 DOSAGE FORM, QD,DAILY(IN THE MORNING)
     Dates: start: 202501
  5. VENLAFAXINE [Suspect]
     Active Substance: VENLAFAXINE HYDROCHLORIDE
     Indication: Mania
     Dosage: 1 DOSAGE FORM, QD, DAILY(IN THE MORNING)
     Dates: start: 202501
  6. VENLAFAXINE [Suspect]
     Active Substance: VENLAFAXINE HYDROCHLORIDE
     Dosage: 1 DOSAGE FORM, QD, DAILY(IN THE MORNING)
     Route: 048
     Dates: start: 202501
  7. VENLAFAXINE [Suspect]
     Active Substance: VENLAFAXINE HYDROCHLORIDE
     Dosage: 1 DOSAGE FORM, QD, DAILY(IN THE MORNING)
     Route: 048
     Dates: start: 202501
  8. VENLAFAXINE [Suspect]
     Active Substance: VENLAFAXINE HYDROCHLORIDE
     Dosage: 1 DOSAGE FORM, QD, DAILY(IN THE MORNING)
     Dates: start: 202501
  9. RISPERIDONE [Suspect]
     Active Substance: RISPERIDONE
     Indication: Mania
     Dosage: 1 DOSAGE FORM, QD,DAILY(IN THE EVENING)
     Dates: start: 202501
  10. RISPERIDONE [Suspect]
     Active Substance: RISPERIDONE
     Dosage: 1 DOSAGE FORM, QD,DAILY(IN THE EVENING)
     Route: 048
     Dates: start: 202501
  11. RISPERIDONE [Suspect]
     Active Substance: RISPERIDONE
     Dosage: 1 DOSAGE FORM, QD,DAILY(IN THE EVENING)
     Route: 048
     Dates: start: 202501
  12. RISPERIDONE [Suspect]
     Active Substance: RISPERIDONE
     Dosage: 1 DOSAGE FORM, QD,DAILY(IN THE EVENING)
     Dates: start: 202501

REACTIONS (2)
  - Depression [Not Recovered/Not Resolved]
  - Disorientation [Not Recovered/Not Resolved]

NARRATIVE: CASE EVENT DATE: 20250101
